FAERS Safety Report 25321950 (Version 1)
Quarter: 2025Q2

REPORT INFORMATION
  Report Type: Spontaneous
  Country: AT (occurrence: AT)
  Receive Date: 20250516
  Receipt Date: 20250516
  Transmission Date: 20250717
  Serious: Yes (Death, Hospitalization)
  Sender: NOVO NORDISK
  Company Number: AT-NOVOPROD-1426158

PATIENT
  Sex: Female

DRUGS (3)
  1. OZEMPIC [Suspect]
     Active Substance: SEMAGLUTIDE
     Indication: Type 2 diabetes mellitus
     Dates: start: 202308
  2. OZEMPIC [Suspect]
     Active Substance: SEMAGLUTIDE
     Dates: end: 202312
  3. OZEMPIC [Suspect]
     Active Substance: SEMAGLUTIDE

REACTIONS (2)
  - Pancreatic carcinoma [Fatal]
  - Nausea [Unknown]

NARRATIVE: CASE EVENT DATE: 20240201
